FAERS Safety Report 6621646-6 (Version None)
Quarter: 2010Q1

REPORT INFORMATION
  Report Type: 
  Country: None (occurrence: None)
  Receive Date: 20100223
  Receipt Date: 20091106
  Transmission Date: 20100710
  Serious: No
  Sender: FDA-Public Use
  Company Number: 8054273

PATIENT
  Sex: Female

DRUGS (1)
  1. CERTOLIZUMAB PEGOL [Suspect]
     Dosage: (SUBCUTANEOUS)
     Route: 058
     Dates: start: 20090908

REACTIONS (4)
  - INJECTION SITE RASH [None]
  - MALAISE [None]
  - MUSCLE SPASMS [None]
  - PAIN [None]
